FAERS Safety Report 17190967 (Version 3)
Quarter: 2020Q1

REPORT INFORMATION
  Report Type: Report from Study
  Country: US (occurrence: US)
  Receive Date: 20191223
  Receipt Date: 20200331
  Transmission Date: 20200409
  Serious: No
  Sender: FDA-Public Use
  Company Number: NVSC2019US076830

PATIENT
  Age: 65 Year
  Sex: Male
  Weight: 90 kg

DRUGS (2)
  1. AFINITOR [Suspect]
     Active Substance: EVEROLIMUS
     Indication: CARCINOID TUMOUR OF THE STOMACH
     Dosage: 10 MG, QD
     Route: 048
     Dates: start: 20191107
  2. AFINITOR [Suspect]
     Active Substance: EVEROLIMUS
     Dosage: 10 MG, QD
     Route: 048
     Dates: start: 20191226

REACTIONS (6)
  - Rash [Not Recovered/Not Resolved]
  - Lethargy [Unknown]
  - Pyrexia [Unknown]
  - Pruritus [Not Recovered/Not Resolved]
  - Product use in unapproved indication [Unknown]
  - Malaise [Unknown]

NARRATIVE: CASE EVENT DATE: 20191226
